FAERS Safety Report 6371408-2 (Version None)
Quarter: 2009Q3

REPORT INFORMATION
  Report Type: 
  Country: None (occurrence: None)
  Receive Date: 20090923
  Receipt Date: 20070823
  Transmission Date: 20100115
  Serious: No
  Sender: FDA-Public Use
  Company Number: US-ASTRAZENECA-2007UW10987

PATIENT
  Age: 41 Year
  Sex: Female
  Weight: 81.6 kg

DRUGS (29)
  1. SEROQUEL [Suspect]
     Indication: DEPRESSION
     Route: 048
     Dates: start: 20040720, end: 20050825
  2. SEROQUEL [Suspect]
     Route: 048
     Dates: start: 20040720, end: 20050825
  3. SEROQUEL [Suspect]
     Route: 048
     Dates: start: 20051003, end: 20051103
  4. PROZAC [Concomitant]
     Route: 065
     Dates: start: 19880101, end: 20010101
  5. PROZAC [Concomitant]
     Dosage: 40-60 MG
     Route: 048
  6. THEOPHYLLINE [Concomitant]
     Route: 065
  7. FUROSEMIDE [Concomitant]
     Route: 048
  8. GLYBURIDE [Concomitant]
     Dosage: 2.5-5 MG
     Route: 048
  9. ATENOLOL [Concomitant]
     Route: 048
  10. PROMETHAZINE [Concomitant]
     Route: 042
  11. PROMETHAZINE [Concomitant]
     Route: 048
  12. RANITIDINE [Concomitant]
     Route: 048
  13. VALIUM [Concomitant]
     Route: 048
  14. ASMANEX TWISTHALER [Concomitant]
     Route: 045
  15. SINGULAIR [Concomitant]
     Route: 048
  16. ABUTEROL [Concomitant]
     Route: 045
  17. PREDNISONE [Concomitant]
     Dosage: 5-20MG
     Route: 048
  18. BUSPIRONE HCL [Concomitant]
     Route: 048
  19. ACETAMINOPHEN [Concomitant]
     Dosage: 325-650MG
     Route: 048
  20. PREMARIN [Concomitant]
     Dosage: 0.1-1.25MG
     Route: 048
  21. NASACORT [Concomitant]
     Dosage: 2 PUFFS DAILY
     Route: 045
  22. ADVAIR HFA [Concomitant]
     Dosage: 2 PUFFS TWICE DAILY
     Route: 045
  23. TOPAMAX [Concomitant]
     Route: 048
  24. LORTAB [Concomitant]
     Dosage: 5MG, 1-2 TABLETS DAILY
     Route: 048
  25. LIPITOR [Concomitant]
     Route: 048
  26. PROTONIX [Concomitant]
     Route: 048
  27. PREVACID [Concomitant]
     Route: 048
  28. CELESTONE [Concomitant]
     Route: 030
  29. ENALAPRIL MALEATE [Concomitant]
     Route: 048

REACTIONS (2)
  - OBESITY [None]
  - TYPE 2 DIABETES MELLITUS [None]
